FAERS Safety Report 9365393 (Version 1)
Quarter: 2013Q2

REPORT INFORMATION
  Report Type: Report from Study
  Country: CA (occurrence: CA)
  Receive Date: 20130625
  Receipt Date: 20130625
  Transmission Date: 20140414
  Serious: Yes (Hospitalization)
  Sender: FDA-Public Use
  Company Number: CA-ROCHE-1217387

PATIENT
  Sex: Male

DRUGS (7)
  1. FILGRASTIM [Suspect]
     Indication: PRODUCT USED FOR UNKNOWN INDICATION
     Dosage: 1 ML/300 MCG
     Route: 065
     Dates: start: 20120623, end: 20130325
  2. PEGFILGRASTIM [Suspect]
     Indication: PRODUCT USED FOR UNKNOWN INDICATION
     Route: 065
     Dates: start: 20130407
  3. CLONAZEPAM [Concomitant]
  4. CLONAZEPAM [Concomitant]
     Route: 065
  5. CISPLATIN [Concomitant]
  6. IFOSFAMIDE [Concomitant]
  7. PACLITAXEL [Concomitant]

REACTIONS (5)
  - Vomiting [Unknown]
  - Bone pain [Unknown]
  - Adverse drug reaction [Unknown]
  - Arthralgia [Unknown]
  - Pain in extremity [Unknown]
